FAERS Safety Report 14476133 (Version 2)
Quarter: 2018Q1

REPORT INFORMATION
  Report Type: Report from Study
  Country: US (occurrence: US)
  Receive Date: 20180201
  Receipt Date: 20180214
  Transmission Date: 20180509
  Serious: Yes (Other)
  Sender: FDA-Public Use
  Company Number: US-TEVA-2018-US-853847

PATIENT
  Age: 30 Year
  Sex: Male

DRUGS (7)
  1. CODEINE [Concomitant]
     Active Substance: CODEINE
     Indication: MUSCLE SPASMS
     Route: 065
  2. TOPIRAMATE. [Suspect]
     Active Substance: TOPIRAMATE
     Indication: MUSCLE SPASMS
     Route: 065
  3. PROPRANOLOL [Concomitant]
     Active Substance: PROPRANOLOL HYDROCHLORIDE
     Indication: MUSCLE SPASMS
     Route: 065
  4. CYCLOBENZAPRINE. [Concomitant]
     Active Substance: CYCLOBENZAPRINE
     Indication: MUSCLE SPASMS
     Route: 065
  5. CAFFEINE. [Suspect]
     Active Substance: CAFFEINE
     Indication: MUSCLE SPASMS
     Route: 065
  6. ALCOHOL. [Concomitant]
     Active Substance: ALCOHOL
     Indication: MUSCLE SPASMS
     Route: 065
  7. CARBAMAZEPINE. [Suspect]
     Active Substance: CARBAMAZEPINE
     Indication: MUSCLE SPASMS
     Route: 065

REACTIONS (14)
  - Gastrooesophageal reflux disease [Unknown]
  - Irritable bowel syndrome [Unknown]
  - Nausea [Recovered/Resolved]
  - Somnolence [Recovered/Resolved]
  - Dizziness [Unknown]
  - Headache [Recovered/Resolved]
  - Aphasia [Unknown]
  - Palpitations [Unknown]
  - Gastritis [Unknown]
  - Amnesia [Unknown]
  - Condition aggravated [Unknown]
  - Disturbance in attention [Unknown]
  - Photophobia [Recovered/Resolved]
  - Vomiting [Recovered/Resolved]
